FAERS Safety Report 5724821-8 (Version None)
Quarter: 2008Q2

REPORT INFORMATION
  Report Type: 
  Country: None (occurrence: None)
  Receive Date: 20080501
  Receipt Date: 20080418
  Transmission Date: 20081010
  Serious: Yes (Life-Threatening, Hospitalization)
  Sender: FDA-Public Use
  Company Number: JP-AMGEN-US273192

PATIENT
  Sex: Male
  Weight: 60 kg

DRUGS (4)
  1. ENBREL [Suspect]
     Indication: RHEUMATOID ARTHRITIS
     Route: 058
     Dates: start: 20070101, end: 20080312
  2. AZULFIDINE EN-TABS [Concomitant]
     Indication: RHEUMATOID ARTHRITIS
     Route: 048
     Dates: start: 20070101, end: 20070101
  3. PREDNISOLONE [Concomitant]
     Indication: RHEUMATOID ARTHRITIS
     Route: 048
     Dates: start: 20070101
  4. PREDNISOLONE [Concomitant]
     Route: 048
     Dates: start: 20070201

REACTIONS (2)
  - CONDITION AGGRAVATED [None]
  - INTERSTITIAL LUNG DISEASE [None]
